FAERS Safety Report 9995437 (Version 1)
Quarter: 2014Q1

REPORT INFORMATION
  Report Type: Spontaneous
  Country: US (occurrence: None)
  Receive Date: 20140307
  Receipt Date: 20140307
  Transmission Date: 20141002
  Serious: No
  Sender: FDA-Public Use
  Company Number: None

PATIENT
  Age: 26 Year
  Sex: Female
  Weight: 65.77 kg

DRUGS (1)
  1. BOTOX [Suspect]
     Indication: MIGRAINE
     Dates: start: 20140304

REACTIONS (3)
  - Vision blurred [None]
  - Swelling [None]
  - Pain [None]
